FAERS Safety Report 9382911 (Version 1)
Quarter: 2013Q3

REPORT INFORMATION
  Report Type: Spontaneous
  Country: FR (occurrence: FR)
  Receive Date: 20130703
  Receipt Date: 20130703
  Transmission Date: 20140515
  Serious: Yes (Death)
  Sender: FDA-Public Use
  Company Number: FR-BAXTER-2013BAX024386

PATIENT
  Age: 77 Year
  Sex: Male

DRUGS (7)
  1. SEVOFLURANE [Suspect]
     Indication: CORONARY ARTERY BYPASS
     Route: 055
     Dates: start: 20121126, end: 20121126
  2. HEPARINE SODIQUE [Suspect]
     Indication: CORONARY ARTERY BYPASS
     Route: 042
     Dates: start: 20121126
  3. SUFENTANIL [Suspect]
     Indication: CORONARY ARTERY BYPASS
     Dates: start: 20121126, end: 20121126
  4. HYPNOMIDATE [Suspect]
     Indication: CORONARY ARTERY BYPASS
     Dates: start: 20121126, end: 20121126
  5. NIMBEX [Suspect]
     Indication: CORONARY ARTERY BYPASS
     Dates: start: 20121126, end: 20121126
  6. CEFAMANDOLE [Suspect]
     Indication: CORONARY ARTERY BYPASS
     Route: 065
     Dates: start: 20121126, end: 20121126
  7. PROTAMINE [Concomitant]
     Indication: PRODUCT USED FOR UNKNOWN INDICATION
     Route: 065

REACTIONS (8)
  - Intestinal ischaemia [Fatal]
  - Hypotension [Unknown]
  - Hyperlactacidaemia [Unknown]
  - Pallor [Unknown]
  - Livedo reticularis [Unknown]
  - Gastric haemorrhage [Unknown]
  - Gastrointestinal tract mucosal pigmentation [Unknown]
  - Mucosal discolouration [Unknown]
